FAERS Safety Report 9466529 (Version 1)
Quarter: 2013Q3

REPORT INFORMATION
  Report Type: Report from Study
  Country: DE (occurrence: DE)
  Receive Date: 20130820
  Receipt Date: 20130820
  Transmission Date: 20140515
  Serious: Yes (Other)
  Sender: FDA-Public Use
  Company Number: DE-BAXTER-2013BAX032417

PATIENT
  Age: 21 Year
  Sex: Male

DRUGS (3)
  1. SEVOFLURANE [Suspect]
     Indication: INDUCTION OF ANAESTHESIA
     Route: 065
  2. SEVOFLURANE [Suspect]
     Route: 065
  3. SEVOFLURAN [Suspect]
     Route: 065

REACTIONS (3)
  - Convulsion [Recovered/Resolved]
  - Grand mal convulsion [Recovered/Resolved]
  - Electroencephalogram abnormal [Recovered/Resolved]
